FAERS Safety Report 6305700-4 (Version None)
Quarter: 2009Q3

REPORT INFORMATION
  Report Type: 
  Country: None (occurrence: None)
  Receive Date: 20090807
  Receipt Date: 20090724
  Transmission Date: 20100115
  Serious: Yes (Other)
  Sender: FDA-Public Use
  Company Number: US-1169402

PATIENT
  Age: 63 Year
  Sex: Male

DRUGS (2)
  1. TRIESENCE [Suspect]
     Indication: MACULAR OEDEMA
     Dosage: (8 MG INTRAVITREAL INJECTION OS INTRAOCULAR)
     Route: 042
     Dates: start: 20081124, end: 20081124
  2. ASPIRIN [Concomitant]

REACTIONS (4)
  - HYPOPYON [None]
  - PSEUDOENDOPHTHALMITIS [None]
  - VISUAL ACUITY REDUCED [None]
  - VITREOUS OPACITIES [None]
